FAERS Safety Report 6908294-5 (Version None)
Quarter: 2010Q3

REPORT INFORMATION
  Report Type: 
  Country: None (occurrence: None)
  Receive Date: 20100720
  Receipt Date: 20090803
  Transmission Date: 20110219
  Serious: Yes (Other)
  Sender: FDA-Public Use
  Company Number: 2009BH012340

PATIENT
  Age: 4 Year
  Sex: Male

DRUGS (1)
  1. ANTIHEMOPHILIC FACTOR (HUMAN) [Suspect]
     Indication: FACTOR VIII DEFICIENCY
     Dosage: ;AS NEEDED;

REACTIONS (1)
  - FACTOR VIII INHIBITION [None]
